FAERS Safety Report 7931540-6 (Version None)
Quarter: 2011Q4

REPORT INFORMATION
  Report Type: 
  Country: None (occurrence: None)
  Receive Date: 20111121
  Receipt Date: 20111116
  Transmission Date: 20120403
  Serious: Yes (Other)
  Sender: FDA-Public Use
  Company Number: US-BAYER-2011-053110

PATIENT
  Sex: Female

DRUGS (2)
  1. BETASERON [Suspect]
     Indication: MULTIPLE SCLEROSIS
     Dosage: 8 MIU, QOD
     Route: 058
     Dates: start: 20110215, end: 20111026
  2. DAILY VITAMINS [Concomitant]

REACTIONS (10)
  - SINUSITIS [None]
  - PHOTOPHOBIA [None]
  - DIPLOPIA [None]
  - EYELID PTOSIS [None]
  - SWELLING FACE [None]
  - MYASTHENIA GRAVIS [None]
  - TOOTHACHE [None]
  - LOCAL SWELLING [None]
  - EYE SWELLING [None]
  - EPISTAXIS [None]
